FAERS Safety Report 6967401-9 (Version None)
Quarter: 2010Q3

REPORT INFORMATION
  Report Type: 
  Country: None (occurrence: None)
  Receive Date: 20100901
  Receipt Date: 20100824
  Transmission Date: 20110219
  Serious: Yes (Other)
  Sender: FDA-Public Use
  Company Number: 2010SP045502

PATIENT
  Age: 37 Year
  Sex: Female

DRUGS (4)
  1. ROCURONIUM BROMIDE [Suspect]
     Indication: GENERAL ANAESTHESIA
     Dates: start: 20100301, end: 20100301
  2. CIPROFLOXACIN [Suspect]
     Indication: PRODUCT USED FOR UNKNOWN INDICATION
     Dosage: 500 MG;BID;
     Dates: start: 20100313, end: 20100323
  3. FENTANYL [Suspect]
     Indication: PRODUCT USED FOR UNKNOWN INDICATION
     Dates: start: 20100301, end: 20100301
  4. LASIX [Suspect]
     Indication: GENERAL ANAESTHESIA
     Dates: start: 20100301, end: 20100301

REACTIONS (3)
  - ABORTION INDUCED [None]
  - DRUG EXPOSURE DURING PREGNANCY [None]
  - HAEMORRHAGE [None]
